FAERS Safety Report 6946423-8 (Version None)
Quarter: 2010Q3

REPORT INFORMATION
  Report Type: 
  Country: None (occurrence: None)
  Receive Date: 20100824
  Receipt Date: 20100813
  Transmission Date: 20110219
  Serious: Yes (Hospitalization)
  Sender: FDA-Public Use
  Company Number: 2010US002716

PATIENT
  Age: 63 Year
  Sex: Female

DRUGS (13)
  1. PROGRAF [Suspect]
     Indication: RENAL TRANSPLANT
     Dosage: 2 MG, BID, ORAL
     Route: 048
     Dates: start: 20100527
  2. ADVAIR DISKUS 100/50 [Concomitant]
  3. BACTRIM [Concomitant]
  4. KLONOPIN [Concomitant]
  5. METOPROLOL SUCCINATE [Concomitant]
  6. MYCELEX [Concomitant]
  7. MYCOPHENOLIC ACID [Concomitant]
  8. NEXIUM IV [Concomitant]
  9. SENOKOT (SENNOSIDE B) [Concomitant]
  10. SIMVASTATIN [Concomitant]
  11. SINGULAIR [Concomitant]
  12. VALCYTE [Concomitant]
  13. NORCO [Concomitant]

REACTIONS (7)
  - DEHYDRATION [None]
  - DIARRHOEA [None]
  - DYSPHAGIA [None]
  - HERPES OESOPHAGITIS [None]
  - ODYNOPHAGIA [None]
  - OESOPHAGEAL ACHALASIA [None]
  - WEIGHT DECREASED [None]
